FAERS Safety Report 9905269 (Version 3)
Quarter: 2014Q1

REPORT INFORMATION
  Report Type: Spontaneous
  Country: BE (occurrence: BE)
  Receive Date: 20140218
  Receipt Date: 20140320
  Transmission Date: 20141002
  Serious: Yes (Life-Threatening, Hospitalization, Other)
  Sender: FDA-Public Use
  Company Number: BE-B.I. PHARMACEUTICALS,INC./RIDGEFIELD-2014-BI-06482BL

PATIENT
  Age: 67 Year
  Sex: Male
  Weight: 79 kg

DRUGS (11)
  1. PRADAXA [Suspect]
     Indication: ATRIAL FIBRILLATION
     Dosage: 300 NR
     Route: 048
     Dates: start: 201304, end: 20140201
  2. ASAFLOW [Concomitant]
     Route: 065
  3. CARDIOASPIRINE [Concomitant]
     Indication: ISCHAEMIC CARDIOMYOPATHY
     Dosage: 200 MG
     Route: 048
     Dates: end: 20140201
  4. CORDARONE [Concomitant]
     Indication: ARRHYTHMIA
     Dosage: 200 NR
     Route: 065
  5. CORDARONE [Concomitant]
     Indication: ATRIAL FIBRILLATION
  6. RAMIPRIL [Concomitant]
     Indication: ISCHAEMIC CARDIOMYOPATHY
     Dosage: 5 MG
     Route: 065
  7. DOMINAL [Concomitant]
     Dosage: 40 MG
     Route: 048
  8. TEMESTA [Concomitant]
     Route: 048
  9. BISOPROLOL [Concomitant]
     Indication: HYPERTENSION
     Route: 065
  10. CRESTOR [Concomitant]
     Indication: LIPID METABOLISM DISORDER
     Route: 065
  11. TRITACE [Concomitant]
     Indication: HYPERTENSION
     Route: 065

REACTIONS (3)
  - Splenic rupture [Not Recovered/Not Resolved]
  - Peritoneal haemorrhage [Not Recovered/Not Resolved]
  - Medication error [Unknown]
